FAERS Safety Report 18956349 (Version 1)
Quarter: 2021Q1

REPORT INFORMATION
  Report Type: Spontaneous
  Country: IE (occurrence: GB)
  Receive Date: 20210302
  Receipt Date: 20210302
  Transmission Date: 20210420
  Serious: Yes (Other)
  Sender: FDA-Public Use
  Company Number: IE-APOTEX-2021AP004432

PATIENT
  Sex: Male

DRUGS (1)
  1. SEROXAT [Suspect]
     Active Substance: PAROXETINE HYDROCHLORIDE
     Indication: PRODUCT USED FOR UNKNOWN INDICATION
     Dosage: UNK
     Route: 048

REACTIONS (5)
  - Suicidal ideation [Unknown]
  - Mental disorder [Unknown]
  - Withdrawal syndrome [Unknown]
  - Malaise [Unknown]
  - Social problem [Unknown]
